FAERS Safety Report 17791773 (Version 1)
Quarter: 2020Q2

REPORT INFORMATION
  Report Type: Spontaneous
  Country: DE (occurrence: DE)
  Receive Date: 20200515
  Receipt Date: 20200515
  Transmission Date: 20200714
  Serious: Yes (Other)
  Sender: FDA-Public Use
  Company Number: DE-009507513-2003DEU002110

PATIENT
  Age: 30 Year
  Sex: Female

DRUGS (3)
  1. IMPLANON NXT [Suspect]
     Active Substance: ETONOGESTREL
     Dosage: 68 DOSAGE FORM (1 DOSAGE FORM), THE SECOND PREVIOUS ROD
     Route: 059
     Dates: end: 20200121
  2. IMPLANON NXT [Suspect]
     Active Substance: ETONOGESTREL
     Indication: CONTRACEPTION
     Dosage: 68 MILLIGRAM (1 DOSAGE FORM), THE THIRD ROD
     Route: 059
     Dates: start: 20200121, end: 20200326
  3. IMPLANON NXT [Suspect]
     Active Substance: ETONOGESTREL
     Dosage: 68 MG (1 DOSAGE FORM), THE FIRST PREVIOUS ROD
     Route: 059

REACTIONS (7)
  - General anaesthesia [Unknown]
  - Local anaesthesia [Unknown]
  - Device expulsion [Recovered/Resolved]
  - Implant site abscess [Recovered/Resolved]
  - Impaired healing [Recovering/Resolving]
  - Puncture site pain [Recovering/Resolving]
  - Implant site erythema [Recovered/Resolved]

NARRATIVE: CASE EVENT DATE: 20200121
